FAERS Safety Report 8951126 (Version 1)
Quarter: 2012Q4

REPORT INFORMATION
  Report Type: 
  Country: US (occurrence: US)
  Receive Date: 20121207
  Receipt Date: 20121207
  Transmission Date: 20130627
  Serious: Yes (Hospitalization)
  Sender: FDA-Public Use
  Company Number: US-BAYER-2012-126611

PATIENT
  Age: 44 Year
  Sex: Female
  Weight: 73.92 kg

DRUGS (8)
  1. YASMIN [Suspect]
     Indication: PREMENSTRUAL SYNDROME
     Dosage: UNK
     Dates: start: 20061204, end: 20070110
  2. YASMIN [Suspect]
     Indication: PREMENSTRUAL DYSPHORIC DISORDER
  3. YASMIN [Suspect]
     Indication: MENSTRUAL CRAMPS
  4. ADVIL [Concomitant]
  5. LEVOTHYROXINE [Concomitant]
  6. ZOLOFT [Concomitant]
  7. LEVOXYL [Concomitant]
  8. NAPROSYN [Concomitant]

REACTIONS (8)
  - Deep vein thrombosis [None]
  - Oedema peripheral [None]
  - Pain in extremity [None]
  - Tenderness [None]
  - Erythema [None]
  - Cardiovascular disorder [None]
  - Varicose vein [None]
  - Off label use [None]
